FAERS Safety Report 25063015 (Version 1)
Quarter: 2025Q1

REPORT INFORMATION
  Report Type: Spontaneous
  Country: IL (occurrence: IL)
  Receive Date: 20250311
  Receipt Date: 20250311
  Transmission Date: 20250408
  Serious: Yes (Other)
  Sender: BRISTOL-MYERS SQUIBB COMPANY
  Company Number: IL-BRISTOL-MYERS SQUIBB COMPANY-2025-030835

PATIENT
  Age: 69 Year
  Sex: Female

DRUGS (2)
  1. LUSPATERCEPT [Suspect]
     Active Substance: LUSPATERCEPT
     Indication: Normocytic anaemia
     Dates: start: 202401
  2. LUSPATERCEPT [Suspect]
     Active Substance: LUSPATERCEPT

REACTIONS (2)
  - Coombs positive haemolytic anaemia [Unknown]
  - Melaena [Unknown]

NARRATIVE: CASE EVENT DATE: 20240301
